FAERS Safety Report 7765271-2 (Version None)
Quarter: 2011Q3

REPORT INFORMATION
  Report Type: 
  Country: None (occurrence: None)
  Receive Date: 20110921
  Receipt Date: 20110919
  Transmission Date: 20111222
  Serious: Yes (Death)
  Sender: FDA-Public Use
  Company Number: RU-GLAXOSMITHKLINE-B0749192A

PATIENT
  Sex: Female

DRUGS (2)
  1. TRASTUZUMAB [Concomitant]
  2. LAPATINIB [Suspect]
     Indication: BREAST CANCER
     Route: 048
     Dates: start: 20110501, end: 20110501

REACTIONS (2)
  - OFF LABEL USE [None]
  - DISEASE PROGRESSION [None]
